FAERS Safety Report 5160561-4 (Version None)
Quarter: 2006Q4

REPORT INFORMATION
  Report Type: 
  Country: None (occurrence: None)
  Receive Date: 20061121
  Receipt Date: 20061107
  Transmission Date: 20070319
  Serious: Yes (Other)
  Sender: FDA-Public Use
  Company Number: 2006100211

PATIENT
  Sex: Female
  Weight: 68.0396 kg

DRUGS (3)
  1. CELEBREX [Suspect]
     Indication: POLYP
     Dosage: 200 MG (200 MG, 1 IN 1 D)
     Dates: end: 20060101
  2. ANTIBIOTICS (ANTIBIOTICS) [Concomitant]
  3. DEMEROL [Concomitant]

REACTIONS (4)
  - HEADACHE [None]
  - INFLAMMATION [None]
  - RASH [None]
  - UNEVALUABLE EVENT [None]
